FAERS Safety Report 9078944 (Version 1)
Quarter: 2013Q1

REPORT INFORMATION
  Report Type: Report from Study
  Country: US (occurrence: US)
  Receive Date: 20130130
  Receipt Date: 20130130
  Transmission Date: 20140127
  Serious: No
  Sender: FDA-Public Use
  Company Number: US-ABBOTT-12P-163-0957380-00

PATIENT
  Age: 54 Year
  Sex: Male
  Weight: 65.83 kg

DRUGS (3)
  1. HUMIRA 40 MG/0.8 ML PEN [Suspect]
     Indication: PSORIASIS
     Route: 058
     Dates: start: 20120508
  2. FLUTICASONE [Concomitant]
     Indication: PSORIASIS
     Dosage: APPLY DAILY
     Route: 061
  3. HYDROCORTISONE [Concomitant]
     Indication: PRURITUS

REACTIONS (4)
  - White blood cell count decreased [Not Recovered/Not Resolved]
  - Poor quality drug administered [Not Recovered/Not Resolved]
  - Psoriasis [Not Recovered/Not Resolved]
  - Drug ineffective [Not Recovered/Not Resolved]
